FAERS Safety Report 12935372 (Version 1)
Quarter: 2016Q4

REPORT INFORMATION
  Report Type: Spontaneous
  Country: US (occurrence: US)
  Receive Date: 20161114
  Receipt Date: 20161114
  Transmission Date: 20170207
  Serious: No
  Sender: FDA-Public Use
  Company Number: US-JAZZ-2016-US-018790

PATIENT
  Sex: Female

DRUGS (21)
  1. XYREM [Suspect]
     Active Substance: SODIUM OXYBATE
     Dosage: 4.5 G, BID
     Route: 048
     Dates: start: 201601
  2. NUVIGIL [Concomitant]
     Active Substance: ARMODAFINIL
  3. BUPROPION. [Concomitant]
     Active Substance: BUPROPION
  4. ADVAIR HFA [Concomitant]
     Active Substance: FLUTICASONE PROPIONATE\SALMETEROL XINAFOATE
  5. ALBUTEROL SULFATE. [Concomitant]
     Active Substance: ALBUTEROL SULFATE
  6. CELEBREX [Concomitant]
     Active Substance: CELECOXIB
  7. CLOTRIMAZOLE. [Concomitant]
     Active Substance: CLOTRIMAZOLE
  8. MULTIVITAMINS                      /00116001/ [Concomitant]
  9. XYREM [Suspect]
     Active Substance: SODIUM OXYBATE
     Indication: NARCOLEPSY
     Dosage: 3 G, BID
     Route: 048
     Dates: start: 201301, end: 201302
  10. METHYLPHENIDATE. [Concomitant]
     Active Substance: METHYLPHENIDATE
  11. FISH OIL [Concomitant]
     Active Substance: FISH OIL
  12. FUROSEMIDE. [Concomitant]
     Active Substance: FUROSEMIDE
  13. COENZYME Q10 [Concomitant]
     Active Substance: UBIDECARENONE
  14. CLARITIN [Concomitant]
     Active Substance: LORATADINE
  15. XYREM [Suspect]
     Active Substance: SODIUM OXYBATE
     Indication: CATAPLEXY
     Dosage: DOSE ADJUSTMENTS
     Route: 048
     Dates: start: 201302, end: 201601
  16. FLUOXETINE HCL [Concomitant]
     Active Substance: FLUOXETINE HYDROCHLORIDE
  17. GABAPENTIN. [Concomitant]
     Active Substance: GABAPENTIN
  18. METHOCARBAMOL. [Concomitant]
     Active Substance: METHOCARBAMOL
  19. ZOFRAN [Concomitant]
     Active Substance: ONDANSETRON HYDROCHLORIDE
  20. HALLS [Concomitant]
     Active Substance: MENTHOL
  21. FLONASE                            /00908302/ [Concomitant]
     Active Substance: MOMETASONE FUROATE

REACTIONS (1)
  - Exposure during pregnancy [Unknown]
